FAERS Safety Report 8519282-X (Version None)
Quarter: 2012Q3

REPORT INFORMATION
  Report Type: 
  Country: None (occurrence: None)
  Receive Date: 20120718
  Receipt Date: 20120704
  Transmission Date: 20120928
  Serious: Yes (Hospitalization)
  Sender: FDA-Public Use
  Company Number: JP-ELI_LILLY_AND_COMPANY-JP201109001513

PATIENT
  Sex: Female

DRUGS (14)
  1. CYMBALTA [Suspect]
     Indication: BIPOLAR DISORDER
     Dosage: 20 MG, UNK
     Route: 048
     Dates: start: 20110223, end: 20110308
  2. CYMBALTA [Suspect]
     Dosage: 40 MG, UNK
     Route: 048
     Dates: start: 20120328, end: 20120424
  3. SEROQUEL [Concomitant]
     Dosage: 75 MG, UNK
     Route: 048
     Dates: start: 20120328
  4. CYMBALTA [Suspect]
     Dosage: 40 MG, UNK
     Route: 048
     Dates: start: 20110309, end: 20110322
  5. CYMBALTA [Suspect]
     Dosage: 20 MG, UNK
     Route: 048
     Dates: start: 20120425, end: 20120703
  6. SEPAZON [Concomitant]
     Indication: PANIC DISORDER
     Dosage: 6 MG, UNK
     Route: 048
     Dates: start: 20090223, end: 20110905
  7. GOODMIN [Concomitant]
     Indication: INSOMNIA
     Dosage: 0.25 MG, UNK
     Route: 048
  8. ALPRAZOLAM [Concomitant]
     Indication: ANXIETY
     Dosage: 1.2 MG, UNK
     Route: 048
     Dates: start: 20120328
  9. ZYPREXA [Suspect]
     Indication: BIPOLAR DISORDER
     Dosage: 20 MG, UNK
     Route: 048
     Dates: start: 20110123, end: 20110905
  10. LORAMET [Concomitant]
     Indication: INSOMNIA
     Dosage: 1 MG, UNK
     Route: 048
  11. CYMBALTA [Suspect]
     Dosage: 60 MG, UNK
     Route: 048
     Dates: start: 20110323, end: 20120301
  12. CYMBALTA [Suspect]
     Dosage: 40 MG, UNK
     Route: 048
     Dates: start: 20120704
  13. SEDIEL [Concomitant]
     Indication: PANIC DISORDER
     Dosage: 30 MG, UNK
     Route: 048
     Dates: start: 20101110, end: 20110905
  14. AMOBAN [Concomitant]
     Indication: INSOMNIA
     Dosage: 7.5 MG, UNK
     Route: 048

REACTIONS (4)
  - HELLP SYNDROME [None]
  - MATERNAL DRUGS AFFECTING FOETUS [None]
  - EXPOSURE DURING BREAST FEEDING [None]
  - HYPERTENSION [None]
